FAERS Safety Report 12857403 (Version 1)
Quarter: 2016Q4

REPORT INFORMATION
  Report Type: Spontaneous
  Country: US (occurrence: US)
  Receive Date: 20161018
  Receipt Date: 20161018
  Transmission Date: 20170207
  Serious: Yes (Other)
  Sender: FDA-Public Use
  Company Number: US-PFIZER INC-2016481454

PATIENT
  Age: 81 Year
  Sex: Male

DRUGS (6)
  1. XTANDI [Suspect]
     Active Substance: ENZALUTAMIDE
     Indication: PROSTATE CANCER
     Dosage: 160 MG, 1X/DAY (40 MG?4)
     Route: 048
     Dates: start: 20160316
  2. METRONIDAZOLE. [Suspect]
     Active Substance: METRONIDAZOLE
     Dosage: UNK
  3. LUPRON [Suspect]
     Active Substance: LEUPROLIDE ACETATE
     Dosage: UNK
  4. XTANDI [Suspect]
     Active Substance: ENZALUTAMIDE
     Dosage: 160 MG, 1X/DAY  (40 MG X 4 CAPSULES)
     Route: 048
     Dates: start: 20160402
  5. CIPROFLOXACIN. [Suspect]
     Active Substance: CIPROFLOXACIN
     Dosage: UNK
  6. NILUTAMIDE. [Suspect]
     Active Substance: NILUTAMIDE
     Dosage: UNK
     Dates: start: 20090123

REACTIONS (14)
  - Initial insomnia [Unknown]
  - Pain in extremity [Unknown]
  - Hyperhidrosis [Unknown]
  - Insomnia [Unknown]
  - Arthralgia [Unknown]
  - Flatulence [Unknown]
  - Incorrect product storage [Unknown]
  - Pain [Unknown]
  - Prostatic specific antigen increased [Unknown]
  - Diverticulitis [Unknown]
  - Hot flush [Unknown]
  - Apathy [Unknown]
  - Burning sensation [Unknown]
  - Asthenia [Unknown]

NARRATIVE: CASE EVENT DATE: 20160615
